FAERS Safety Report 13084327 (Version 1)
Quarter: 2017Q1

REPORT INFORMATION
  Report Type: Spontaneous
  Country: AU (occurrence: AU)
  Receive Date: 20170104
  Receipt Date: 20170104
  Transmission Date: 20170428
  Serious: Yes (Other)
  Sender: FDA-Public Use
  Company Number: AU-GLAXOSMITHKLINE-AU2016GSK194904

PATIENT
  Age: 84 Year
  Sex: Male

DRUGS (4)
  1. FLUTICASONE PROPIONATE+SALMETEROL XINAFOATE [Suspect]
     Active Substance: FLUTICASONE PROPIONATE\SALMETEROL XINAFOATE
     Indication: CHRONIC OBSTRUCTIVE PULMONARY DISEASE
     Route: 055
  2. ATAZANAVIR + RITONAVIR [Interacting]
     Active Substance: ATAZANAVIR\RITONAVIR
     Indication: HIV INFECTION
  3. DOLUTEGRAVIR [Concomitant]
     Active Substance: DOLUTEGRAVIR
  4. LAMIVUDINE. [Concomitant]
     Active Substance: LAMIVUDINE

REACTIONS (9)
  - Drug interaction [Unknown]
  - Adrenal insufficiency [Unknown]
  - Cushingoid [Unknown]
  - Osteoporosis [Unknown]
  - Clavicle fracture [Unknown]
  - Body fat disorder [Unknown]
  - Orthostatic hypotension [Unknown]
  - Fall [Unknown]
  - Oedema peripheral [Unknown]
